FAERS Safety Report 9279550 (Version 2)
Quarter: 2013Q3

REPORT INFORMATION
  Report Type: Spontaneous
  Country: GB (occurrence: GB)
  Receive Date: 20130509
  Receipt Date: 20130708
  Transmission Date: 20140515
  Serious: Yes (Other)
  Sender: FDA-Public Use
  Company Number: GB-AMGEN-GBRSP2013032150

PATIENT
  Age: 69 Year
  Sex: Female
  Weight: 85 kg

DRUGS (4)
  1. ENBREL [Suspect]
     Indication: RHEUMATOID ARTHRITIS
     Dosage: 25 MG, 2 TIMES/WK
     Route: 065
     Dates: start: 201301
  2. LEVOTHYROXINE [Concomitant]
     Indication: HYPOTHYROIDISM
     Dosage: 50 UG, PER DAY
     Route: 048
     Dates: start: 201011
  3. FOLIC ACID [Concomitant]
     Dosage: 5 MG, A DAY
     Route: 048
     Dates: start: 201206
  4. PREDNISOLONE [Concomitant]
     Dosage: 75 MG, PER DAY
     Route: 048
     Dates: start: 201202

REACTIONS (2)
  - Cystitis [Unknown]
  - Urinary tract infection [Not Recovered/Not Resolved]
